FAERS Safety Report 23479588 (Version 1)
Quarter: 2024Q1

REPORT INFORMATION
  Report Type: Spontaneous
  Country: US (occurrence: US)
  Receive Date: 20240205
  Receipt Date: 20240205
  Transmission Date: 20240409
  Serious: No
  Sender: FDA-Public Use
  Company Number: US-UCBSA-2022072032

PATIENT
  Age: 56 Year
  Sex: Female

DRUGS (2)
  1. KEPPRA XR [Suspect]
     Active Substance: LEVETIRACETAM
     Indication: Product used for unknown indication
     Dosage: 1000 MILLIGRAM, ONCE DAILY (QD)
     Dates: start: 20101201
  2. KEPPRA XR [Suspect]
     Active Substance: LEVETIRACETAM
     Dosage: 750 MILLIGRAM

REACTIONS (2)
  - Urticaria [Not Recovered/Not Resolved]
  - Rash pruritic [Not Recovered/Not Resolved]

NARRATIVE: CASE EVENT DATE: 20221123
